FAERS Safety Report 7647665-9 (Version None)
Quarter: 2011Q3

REPORT INFORMATION
  Report Type: 
  Country: None (occurrence: None)
  Receive Date: 20110801
  Receipt Date: 20110801
  Transmission Date: 20111222
  Serious: Yes (Life-Threatening)
  Sender: FDA-Public Use
  Company Number: None

PATIENT
  Sex: Male

DRUGS (2)
  1. TEMODAR [Suspect]
     Indication: MALIGNANT SOFT TISSUE NEOPLASM
     Dosage: 320 MG
     Route: 048
  2. TEMODAR [Concomitant]

REACTIONS (1)
  - DRUG HYPERSENSITIVITY [None]
